FAERS Safety Report 5144239-9 (Version None)
Quarter: 2006Q4

REPORT INFORMATION
  Report Type: 
  Country: None (occurrence: None)
  Receive Date: 20061106
  Receipt Date: 20061026
  Transmission Date: 20070319
  Serious: Yes (Death)
  Sender: FDA-Public Use
  Company Number: FR-ROCHE-469175

PATIENT
  Age: 56 Year
  Sex: Male

DRUGS (8)
  1. FUZEON [Suspect]
     Indication: HIV INFECTION
     Route: 058
     Dates: start: 20060510, end: 20061004
  2. DARUNAVIR [Suspect]
     Indication: DRUG USE FOR UNKNOWN INDICATION
     Route: 048
     Dates: start: 20060510, end: 20061004
  3. ZERIT [Suspect]
     Indication: DRUG USE FOR UNKNOWN INDICATION
     Route: 048
     Dates: start: 20060510, end: 20061004
  4. NORVIR [Suspect]
     Indication: DRUG USE FOR UNKNOWN INDICATION
     Route: 048
     Dates: start: 20060510, end: 20061004
  5. ZYPREXA [Concomitant]
  6. BEFIZAL [Concomitant]
  7. WELLVONE [Concomitant]
  8. ROVALCYTE [Concomitant]

REACTIONS (1)
  - LACTIC ACIDOSIS [None]
